FAERS Safety Report 8582960-0 (Version None)
Quarter: 2012Q2

REPORT INFORMATION
  Report Type: 
  Country: None (occurrence: None)
  Receive Date: 20120423
  Receipt Date: 20080829
  Transmission Date: 20120825
  Serious: Yes (Other)
  Sender: FDA-Public Use
  Company Number: PHEH2008US05168

PATIENT
  Sex: Female
  Weight: 146 kg

DRUGS (6)
  1. INTAL [Concomitant]
  2. CROMOLYN (CROMOGLICIC ACID) [Concomitant]
  3. PREVACID [Concomitant]
  4. FORADIL [Suspect]
     Indication: ASTHMA
     Dosage: 12 MCG, BID, INHALATION
     Route: 055
     Dates: start: 20080521, end: 20080524
  5. ALBUTEROL [Concomitant]
  6. SINGULAIR [Concomitant]

REACTIONS (7)
  - AGITATION [None]
  - FEELING JITTERY [None]
  - PALPITATIONS [None]
  - DIZZINESS [None]
  - TACHYCARDIA [None]
  - LIP SWELLING [None]
  - IRRITABILITY [None]
